FAERS Safety Report 5002750-5 (Version None)
Quarter: 2006Q2

REPORT INFORMATION
  Report Type: 
  Country: None (occurrence: None)
  Receive Date: 20060512
  Receipt Date: 20060502
  Transmission Date: 20061013
  Serious: Yes (Disabling, Other)
  Sender: FDA-Public Use
  Company Number: 2006060562

PATIENT
  Sex: Female

DRUGS (3)
  1. CELEBREX [Suspect]
     Indication: HEADACHE
     Dates: start: 20060101
  2. NAPROXEN [Concomitant]
  3. AL OTHER THERPEUTICS(ALL OTHER THEREPEUTIC  PRODUCTS) [Concomitant]

REACTIONS (2)
  - HEADACHE [None]
  - KNEE ARTHROPLASTY [None]
